FAERS Safety Report 9997270 (Version 1)
Quarter: 2014Q1

REPORT INFORMATION
  Report Type: Spontaneous
  Country: US (occurrence: US)
  Receive Date: 20140311
  Receipt Date: 20140311
  Transmission Date: 20141002
  Serious: No
  Sender: FDA-Public Use
  Company Number: US-GLAXOSMITHKLINE-A1027249A

PATIENT
  Age: 36 Year
  Sex: Female

DRUGS (2)
  1. NICORETTE WHITE ICE OTC 2MG [Suspect]
     Indication: EX-TOBACCO USER
     Dates: start: 20130609, end: 20130613
  2. NICORETTE NICOTINE POLACRILEX LOZENGE [Suspect]
     Indication: EX-TOBACCO USER

REACTIONS (4)
  - Abdominal discomfort [Not Recovered/Not Resolved]
  - Intentional drug misuse [Not Recovered/Not Resolved]
  - Nicotine dependence [Not Recovered/Not Resolved]
  - Product quality issue [Unknown]
